FAERS Safety Report 4362194-6 (Version None)
Quarter: 2004Q2

REPORT INFORMATION
  Report Type: 
  Country: None (occurrence: None)
  Receive Date: 20040521
  Receipt Date: 20031229
  Transmission Date: 20050107
  Serious: Yes (Death)
  Sender: FDA-Public Use
  Company Number: 200323139GDDC

PATIENT
  Age: 88 Year
  Sex: Male
  Weight: 60 kg

DRUGS (10)
  1. INDAPAMIDE [Suspect]
     Indication: ESSENTIAL HYPERTENSION
     Route: 048
     Dates: start: 20021108, end: 20030729
  2. ACCUPRIL [Concomitant]
  3. ASTRIX [Concomitant]
  4. SPIRONOLACTONE [Concomitant]
     Dates: end: 20030506
  5. DICHLOTRIDE [Concomitant]
     Dates: start: 20021108, end: 20030328
  6. FUROSEMIDE [Concomitant]
     Dates: start: 20030424, end: 20030506
  7. GTN [Concomitant]
     Dates: start: 20030424, end: 20030506
  8. CEPHALEXIN [Concomitant]
     Dates: start: 20030501, end: 20030501
  9. METRONIDAZOLE [Concomitant]
     Dates: start: 20030501, end: 20030501
  10. MIRTAZAPINE [Concomitant]
     Dates: start: 20030506, end: 20030601

REACTIONS (7)
  - ACUTE MYOCARDIAL INFARCTION [None]
  - BLADDER NECK OBSTRUCTION [None]
  - HYDRONEPHROSIS [None]
  - HYPONATRAEMIA [None]
  - PNEUMONIA [None]
  - PROSTATIC DISORDER [None]
  - RESIDUAL URINE VOLUME [None]
